FAERS Safety Report 20022740 (Version 1)
Quarter: 2021Q4

REPORT INFORMATION
  Report Type: Spontaneous
  Country: US (occurrence: US)
  Receive Date: 20211102
  Receipt Date: 20211102
  Transmission Date: 20220303
  Serious: Yes (Other)
  Sender: FDA-Public Use
  Company Number: US-drreddys-SPO/USA/21/0143174

PATIENT
  Age: 13 Year
  Sex: Male

DRUGS (1)
  1. ZENATANE [Suspect]
     Active Substance: ISOTRETINOIN
     Indication: Product used for unknown indication
     Dosage: RMA ISSUE DATE: 07 JULY 2021 12:00:00 AM, 13 AUGUST 2021 12:00:00 AM, 17 SEPTEMBER 2021 12:00:00 AM
     Dates: start: 20210707

REACTIONS (1)
  - Depressed mood [Recovered/Resolved]
